FAERS Safety Report 8008907-3 (Version None)
Quarter: 2011Q4

REPORT INFORMATION
  Report Type: 
  Country: None (occurrence: None)
  Receive Date: 20111221
  Receipt Date: 20111212
  Transmission Date: 20120403
  Serious: Yes (Other)
  Sender: FDA-Public Use
  Company Number: TPA2011A08391

PATIENT
  Age: 58 Year
  Sex: Male

DRUGS (3)
  1. UNKNOWN SULFONYLUREA (DRUG USED IN DIABETES) [Concomitant]
  2. ACTOS [Suspect]
     Indication: TYPE 2 DIABETES MELLITUS
     Dosage: 45 MG, 1 IN 1 D, PER ORAL
     Route: 048
     Dates: start: 20080101, end: 20101201
  3. UNKNOWN SULFONYLUREA (DRUG USED IN DIABETES) [Concomitant]

REACTIONS (1)
  - BLADDER CANCER [None]
